FAERS Safety Report 4757406-0 (Version None)
Quarter: 2005Q3

REPORT INFORMATION
  Report Type: 
  Country: None (occurrence: None)
  Receive Date: 20050829
  Receipt Date: 20050824
  Transmission Date: 20060218
  Serious: Yes (Life-Threatening, Hospitalization)
  Sender: FDA-Public Use
  Company Number: 200511890BCC

PATIENT
  Age: 61 Year
  Sex: Female
  Weight: 69.8539 kg

DRUGS (5)
  1. ALEVE [Suspect]
     Indication: OSTEOARTHRITIS
     Dosage: 440-880 MG, BID, ORAL
     Route: 048
  2. ALEVE [Suspect]
     Indication: RHEUMATOID ARTHRITIS
     Dosage: 440-880 MG, BID, ORAL
     Route: 048
  3. NORVASC [Concomitant]
  4. ZIAC [Concomitant]
  5. STEROIDS [Concomitant]

REACTIONS (6)
  - DRUG INEFFECTIVE [None]
  - GASTRIC HAEMORRHAGE [None]
  - GASTRITIS [None]
  - HAEMORRHAGE [None]
  - SYNCOPE [None]
  - WEIGHT INCREASED [None]
